FAERS Safety Report 9829855 (Version 1)
Quarter: 2014Q1

REPORT INFORMATION
  Report Type: Spontaneous
  Country: US (occurrence: US)
  Receive Date: 20140120
  Receipt Date: 20140120
  Transmission Date: 20141002
  Serious: No
  Sender: FDA-Public Use
  Company Number: US-009507513-1401USA008059

PATIENT
  Age: 21 Year
  Sex: Female
  Weight: 42.18 kg

DRUGS (3)
  1. NEXPLANON [Suspect]
     Indication: CONTRACEPTION
     Dosage: FREQUENCY: 3 YEAR IMPLANT IN LEFT ARM
     Route: 059
     Dates: start: 20130114
  2. ADAVIN [Concomitant]
     Indication: ANXIETY
     Dosage: UNK
     Route: 042
     Dates: start: 201312
  3. TORADOL [Concomitant]
     Indication: PAIN

REACTIONS (1)
  - Menstrual disorder [Unknown]
